FAERS Safety Report 6613946-0 (Version None)
Quarter: 2010Q1

REPORT INFORMATION
  Report Type: 
  Country: None (occurrence: None)
  Receive Date: 20100304
  Receipt Date: 20100225
  Transmission Date: 20100710
  Serious: Yes (Hospitalization)
  Sender: FDA-Public Use
  Company Number: B0637394A

PATIENT
  Sex: Female

DRUGS (1)
  1. RYTMONORM [Suspect]
     Indication: ARRHYTHMIA
     Dosage: 450MG PER DAY
     Route: 048
     Dates: start: 20090401

REACTIONS (3)
  - CIRCULATORY COLLAPSE [None]
  - HEADACHE [None]
  - MALAISE [None]
